FAERS Safety Report 20424457 (Version 1)
Quarter: 2022Q1

REPORT INFORMATION
  Report Type: Report from Study
  Country: US (occurrence: US)
  Receive Date: 20220203
  Receipt Date: 20220203
  Transmission Date: 20220424
  Serious: No
  Sender: FDA-Public Use
  Company Number: US-EXELIXIS-CABO-20035572

PATIENT
  Sex: Female

DRUGS (2)
  1. CABOMETYX [Suspect]
     Active Substance: CABOZANTINIB S-MALATE
     Indication: Renal cancer
     Dosage: 60 MG, QD
     Route: 048
     Dates: start: 202010
  2. CABOMETYX [Suspect]
     Active Substance: CABOZANTINIB S-MALATE
     Dosage: 60 MG, QD
     Route: 048
     Dates: start: 202012

REACTIONS (9)
  - Adverse drug reaction [Unknown]
  - Nasal discomfort [Unknown]
  - Blister [Unknown]
  - Tongue discomfort [Unknown]
  - Gingival discomfort [Unknown]
  - Constipation [Unknown]
  - Diarrhoea [Unknown]
  - Oral pain [Unknown]
  - Back pain [Unknown]
